FAERS Safety Report 7250262-0 (Version None)
Quarter: 2011Q1

REPORT INFORMATION
  Report Type: 
  Country: None (occurrence: None)
  Receive Date: 20110119
  Receipt Date: 20110105
  Transmission Date: 20110831
  Serious: Yes (Death, Hospitalization)
  Sender: FDA-Public Use
  Company Number: UTC-004034

PATIENT
  Age: 65 Year
  Sex: Female

DRUGS (1)
  1. REMODULIN [Suspect]

REACTIONS (1)
  - DEATH [None]
